FAERS Safety Report 9442859 (Version 1)
Quarter: 2013Q3

REPORT INFORMATION
  Report Type: Spontaneous
  Country: US (occurrence: None)
  Receive Date: 20130805
  Receipt Date: 20130805
  Transmission Date: 20140515
  Serious: Yes (Disabling)
  Sender: FDA-Public Use
  Company Number: None

PATIENT
  Age: 49 Year
  Sex: Female
  Weight: 79.38 kg

DRUGS (1)
  1. CIPROFLOXACIN HCL [Suspect]
     Indication: DIVERTICULITIS
     Dosage: 1 TABLET TWICE DAILY PO
     Route: 048
     Dates: start: 20130228, end: 20130302

REACTIONS (7)
  - Musculoskeletal pain [None]
  - Tendonitis [None]
  - Tendon pain [None]
  - Back pain [None]
  - Tinnitus [None]
  - Neuropathy peripheral [None]
  - Fatigue [None]
